FAERS Safety Report 7465419-3 (Version None)
Quarter: 2011Q2

REPORT INFORMATION
  Report Type: 
  Country: None (occurrence: None)
  Receive Date: 20110509
  Receipt Date: 20110114
  Transmission Date: 20111010
  Serious: No
  Sender: FDA-Public Use
  Company Number: US-BAUSCH-2011BL000320

PATIENT
  Sex: Male

DRUGS (1)
  1. LOTEMAX [Suspect]
     Indication: EPISCLERITIS
     Route: 047
     Dates: start: 20110107, end: 20110114

REACTIONS (1)
  - DRUG INEFFECTIVE [None]
